FAERS Safety Report 16930554 (Version 2)
Quarter: 2019Q4

REPORT INFORMATION
  Report Type: Spontaneous
  Country: JP (occurrence: JP)
  Receive Date: 20191017
  Receipt Date: 20191105
  Transmission Date: 20200122
  Serious: Yes (Other)
  Sender: FDA-Public Use
  Company Number: JP-GUERBET-JP-20190192

PATIENT
  Age: 75 Year
  Sex: Male

DRUGS (2)
  1. DSM [Concomitant]
     Indication: REGIONAL CHEMOTHERAPY
     Route: 013
     Dates: start: 201406
  2. LIPIODOL [Suspect]
     Active Substance: ETHIODIZED OIL
     Indication: REGIONAL CHEMOTHERAPY
     Route: 013
     Dates: start: 201406

REACTIONS (2)
  - Product use in unapproved indication [Recovered/Resolved]
  - Liver abscess [Recovered/Resolved]

NARRATIVE: CASE EVENT DATE: 201410
